FAERS Safety Report 21089514 (Version 2)
Quarter: 2022Q3

REPORT INFORMATION
  Report Type: Spontaneous
  Country: US (occurrence: US)
  Receive Date: 20220715
  Receipt Date: 20220928
  Transmission Date: 20221027
  Serious: No
  Sender: FDA-Public Use
  Company Number: US-BIOGEN-2022BI01139668

PATIENT
  Age: 50 Year
  Sex: Female

DRUGS (1)
  1. TECFIDERA [Suspect]
     Active Substance: DIMETHYL FUMARATE
     Indication: Product used for unknown indication
     Route: 050
     Dates: start: 2013

REACTIONS (20)
  - Temperature intolerance [Unknown]
  - Muscle contractions involuntary [Unknown]
  - Bruxism [Unknown]
  - Muscle spasms [Unknown]
  - Neck pain [Unknown]
  - Hyperventilation [Unknown]
  - Pain [Unknown]
  - Asthenia [Unknown]
  - Fatigue [Unknown]
  - Pruritus [Unknown]
  - Flushing [Unknown]
  - Myalgia [Unknown]
  - Musculoskeletal disorder [Unknown]
  - Hypoaesthesia [Unknown]
  - Headache [Unknown]
  - Tremor [Unknown]
  - Memory impairment [Unknown]
  - Speech disorder [Unknown]
  - Feeling hot [Unknown]
  - Skin warm [Unknown]

NARRATIVE: CASE EVENT DATE: 20220705
